FAERS Safety Report 7938056-1 (Version None)
Quarter: 2011Q4

REPORT INFORMATION
  Report Type: 
  Country: None (occurrence: None)
  Receive Date: 20111123
  Receipt Date: 20111121
  Transmission Date: 20120403
  Serious: Yes (Hospitalization)
  Sender: FDA-Public Use
  Company Number: PL-GLAXOSMITHKLINE-Z0008026A

PATIENT
  Sex: Male
  Weight: 82 kg

DRUGS (3)
  1. OFATUMUMAB [Suspect]
     Indication: NON-HODGKIN'S LYMPHOMA
     Dosage: 1000MG CYCLIC
     Route: 042
     Dates: start: 20101129
  2. DALTEPARIN SODIUM [Concomitant]
     Indication: PULMONARY THROMBOSIS
     Dosage: 200MG PER DAY
     Route: 058
     Dates: start: 20110323
  3. BENDAMUSTINE [Suspect]
     Indication: NON-HODGKIN'S LYMPHOMA
     Dosage: 90MGM2 CYCLIC
     Route: 042
     Dates: start: 20101129

REACTIONS (1)
  - PULMONARY THROMBOSIS [None]
